FAERS Safety Report 4277478-X (Version None)
Quarter: 2004Q1

REPORT INFORMATION
  Report Type: 
  Country: None (occurrence: None)
  Receive Date: 20040121
  Receipt Date: 20040121
  Transmission Date: 20041129
  Serious: Yes (Other)
  Sender: FDA-Public Use
  Company Number: None

PATIENT
  Age: 36 Year
  Sex: Female
  Weight: 86.1834 kg

DRUGS (1)
  1. TOPAMAX [Suspect]
     Indication: EATING DISORDER
     Dosage: 100 MG 2 X''S A D ORAL
     Route: 048
     Dates: start: 20030701, end: 20040119

REACTIONS (4)
  - ANHIDROSIS [None]
  - BURNING SENSATION [None]
  - FEELING HOT AND COLD [None]
  - HYPERTHERMIA [None]
